FAERS Safety Report 5756037-3 (Version None)
Quarter: 2008Q2

REPORT INFORMATION
  Report Type: 
  Country: None (occurrence: None)
  Receive Date: 20080602
  Receipt Date: 20080526
  Transmission Date: 20081010
  Serious: Yes (Other)
  Sender: FDA-Public Use
  Company Number: PHHY2008BR08991

PATIENT
  Age: 26 Year
  Sex: Female
  Weight: 60 kg

DRUGS (2)
  1. TRILEPTAL [Suspect]
     Indication: CONVULSION
     Dosage: 2 TABLETS DAILY (600MG)
     Dates: start: 19820101
  2. TRILEPTAL [Suspect]
     Dosage: 2.5 TABLETS DAILY (600MG)

REACTIONS (5)
  - CONVULSION [None]
  - DISTRACTIBILITY [None]
  - FALL [None]
  - LISTLESS [None]
  - SOMNOLENCE [None]
